FAERS Safety Report 21938026 (Version 1)
Quarter: 2023Q1

REPORT INFORMATION
  Report Type: Report from Study
  Country: US (occurrence: US)
  Receive Date: 20230201
  Receipt Date: 20230201
  Transmission Date: 20230417
  Serious: No
  Sender: FDA-Public Use
  Company Number: US-INCYTE CORPORATION-2021IN005801

PATIENT

DRUGS (1)
  1. PEMIGATINIB [Suspect]
     Active Substance: PEMIGATINIB
     Indication: Cholangiocarcinoma
     Dosage: 13.5 MILLIGRAM
     Route: 048
     Dates: start: 20210609

REACTIONS (8)
  - Swelling [Unknown]
  - Erythema [Unknown]
  - Joint swelling [Unknown]
  - Rash macular [Unknown]
  - Rash erythematous [Unknown]
  - Skin exfoliation [Unknown]
  - Pain in extremity [Unknown]
  - Arthralgia [Unknown]

NARRATIVE: CASE EVENT DATE: 20210601
